FAERS Safety Report 4442198-5 (Version None)
Quarter: 2004Q3

REPORT INFORMATION
  Report Type: 
  Country: None (occurrence: None)
  Receive Date: 20040903
  Receipt Date: 20040726
  Transmission Date: 20050211
  Serious: Yes (Other)
  Sender: FDA-Public Use
  Company Number: 2004UW15738

PATIENT
  Age: 47 Year
  Sex: Female
  Weight: 86.1834 kg

DRUGS (4)
  1. CRESTOR [Suspect]
     Indication: BLOOD CHOLESTEROL INCREASED
     Dosage: 5 MG PO
     Route: 048
  2. SYNTHROID [Concomitant]
  3. NEXIUM [Concomitant]
  4. ADVIL [Concomitant]

REACTIONS (5)
  - ABNORMAL DREAMS [None]
  - FEELING ABNORMAL [None]
  - INSOMNIA [None]
  - LIMB DISCOMFORT [None]
  - MUSCLE CRAMP [None]
